FAERS Safety Report 4487063-2 (Version None)
Quarter: 2004Q4

REPORT INFORMATION
  Report Type: 
  Country: None (occurrence: None)
  Receive Date: 20041027
  Receipt Date: 20040910
  Transmission Date: 20050328
  Serious: Yes (Hospitalization)
  Sender: FDA-Public Use
  Company Number: US-GLAXOSMITHKLINE-A0525404A

PATIENT
  Age: 75 Year
  Sex: Male
  Weight: 61.8 kg

DRUGS (11)
  1. TOPOTECAN [Suspect]
     Indication: SMALL CELL LUNG CANCER STAGE UNSPECIFIED
     Dosage: 4MGM2 WEEKLY
     Route: 042
     Dates: start: 20040831, end: 20040914
  2. ANZEMET [Concomitant]
     Dates: start: 20040817, end: 20040831
  3. ARANESP [Concomitant]
     Dates: start: 20040521, end: 20040824
  4. PROCRIT [Concomitant]
     Dates: start: 20040831
  5. VICODIN [Concomitant]
  6. ISORDIL [Concomitant]
  7. SYNTHROID [Concomitant]
     Dosage: 100MCG PER DAY
     Route: 048
  8. NIFEDIPINE [Concomitant]
     Route: 048
  9. ASPIRIN [Concomitant]
     Route: 048
  10. IMDUR [Concomitant]
     Dosage: 10MG THREE TIMES PER DAY
     Route: 048
  11. HYDROCODONE BITARTRATE AND ACETAMINOPHEN [Concomitant]
     Dosage: 500MG AS REQUIRED
     Route: 048

REACTIONS (7)
  - ASTHENIA [None]
  - CONFUSIONAL STATE [None]
  - DISORIENTATION [None]
  - DIZZINESS [None]
  - DIZZINESS POSTURAL [None]
  - HYPERCALCAEMIA [None]
  - MENTAL STATUS CHANGES [None]
